FAERS Safety Report 7915957-1 (Version None)
Quarter: 2011Q4

REPORT INFORMATION
  Report Type: 
  Country: None (occurrence: None)
  Receive Date: 20111115
  Receipt Date: 20111109
  Transmission Date: 20120403
  Serious: Yes (Hospitalization)
  Sender: FDA-Public Use
  Company Number: IT-MERCK-1111ITA00019

PATIENT
  Age: 69 Year
  Sex: Female

DRUGS (8)
  1. LEVOTHYROXINE SODIUM [Concomitant]
     Route: 048
  2. ZOCOR [Suspect]
     Route: 048
     Dates: start: 20111001, end: 20111019
  3. SIMVASTATIN [Suspect]
     Route: 048
     Dates: start: 20111020, end: 20111021
  4. ATENOLOL [Suspect]
     Route: 048
     Dates: start: 20111020, end: 20111021
  5. ASPIRIN [Concomitant]
     Indication: ACUTE MYOCARDIAL INFARCTION
     Route: 048
  6. CLOPIDOGREL [Suspect]
     Indication: ACUTE MYOCARDIAL INFARCTION
     Route: 048
     Dates: start: 20111020, end: 20111021
  7. RAMIPRIL [Suspect]
     Indication: HYPERTENSION
     Route: 048
     Dates: start: 20111020, end: 20111021
  8. PANTOPRAZOLE [Suspect]
     Route: 048
     Dates: start: 20111020, end: 20111021

REACTIONS (3)
  - PRODUCT SUBSTITUTION ISSUE [None]
  - RASH MACULO-PAPULAR [None]
  - PRURITUS GENERALISED [None]
